FAERS Safety Report 16014175 (Version 1)
Quarter: 2019Q1

REPORT INFORMATION
  Report Type: Spontaneous
  Country: US (occurrence: US)
  Receive Date: 20190227
  Receipt Date: 20190227
  Transmission Date: 20190418
  Serious: Yes (Hospitalization)
  Sender: FDA-Public Use
  Company Number: US-EISAI MEDICAL RESEARCH-EC-2019-052401

PATIENT
  Sex: Female
  Weight: 78.47 kg

DRUGS (4)
  1. ARICEPT [Suspect]
     Active Substance: DONEPEZIL HYDROCHLORIDE
     Dosage: NON-EISAI TRANSDERMAL DONEPEZIL (DOSE INCREASE)
     Route: 059
  2. ARICEPT [Suspect]
     Active Substance: DONEPEZIL HYDROCHLORIDE
     Indication: AMNESIA
     Dosage: UNKNOWN
     Route: 048
     Dates: start: 201610
  3. ARICEPT [Suspect]
     Active Substance: DONEPEZIL HYDROCHLORIDE
     Dosage: NON-EISAI TRANSDERMAL DONEPEZIL (UNKNOWN DOSE)
     Route: 059
  4. LOMOTIL [Suspect]
     Active Substance: ATROPINE SULFATE\DIPHENOXYLATE HYDROCHLORIDE
     Indication: DIARRHOEA
     Dosage: UNKNOWN
     Route: 065

REACTIONS (1)
  - Diarrhoea [Not Recovered/Not Resolved]
